FAERS Safety Report 6733697-1 (Version None)
Quarter: 2010Q2

REPORT INFORMATION
  Report Type: 
  Country: None (occurrence: None)
  Receive Date: 20100520
  Receipt Date: 20100512
  Transmission Date: 20101027
  Serious: Yes (Life-Threatening, Hospitalization, Other)
  Sender: FDA-Public Use
  Company Number: GB-BAYER-201024983GPV

PATIENT
  Age: 85 Year
  Sex: Female

DRUGS (5)
  1. ASPIRIN [Suspect]
     Indication: PROPHYLAXIS
     Route: 048
     Dates: end: 20100430
  2. ARTHROTEC [Suspect]
     Indication: PAIN
     Dosage: TOTAL DAILY DOSE: 150 MG
     Route: 048
     Dates: end: 20100430
  3. BISOPROLOL [Concomitant]
     Indication: DRUG USE FOR UNKNOWN INDICATION
  4. IBUPROFEN [Concomitant]
     Indication: DRUG USE FOR UNKNOWN INDICATION
  5. MISOPROSTOL [Concomitant]
     Indication: DRUG USE FOR UNKNOWN INDICATION

REACTIONS (3)
  - ANURIA [None]
  - GASTRIC ULCER HAEMORRHAGE [None]
  - GASTRIC ULCER PERFORATION [None]
